FAERS Safety Report 11280040 (Version 1)
Quarter: 2015Q3

REPORT INFORMATION
  Report Type: Spontaneous
  Country: US (occurrence: US)
  Receive Date: 20150717
  Receipt Date: 20150717
  Transmission Date: 20151125
  Serious: No
  Sender: FDA-Public Use
  Company Number: US-GALDERMA-US15002075

PATIENT
  Age: 34 Year
  Sex: Female

DRUGS (4)
  1. VICHY MOISTURIZER [Concomitant]
     Route: 061
  2. DERMABLEND MAKEUP [Concomitant]
  3. VICHY CLEANSER [Concomitant]
     Route: 061
  4. SOOLANTRA [Suspect]
     Active Substance: IVERMECTIN
     Indication: ACNE
     Dosage: 1%
     Route: 061
     Dates: start: 20150322, end: 20150329

REACTIONS (7)
  - Rash erythematous [Recovered/Resolved]
  - Erythema [Recovered/Resolved]
  - Rash pruritic [Recovered/Resolved]
  - Acne [Recovered/Resolved]
  - Rash papular [Recovered/Resolved]
  - Skin irritation [Recovered/Resolved]
  - Presyncope [Recovered/Resolved]

NARRATIVE: CASE EVENT DATE: 20150322
